FAERS Safety Report 20002776 (Version 1)
Quarter: 2021Q4

REPORT INFORMATION
  Report Type: Spontaneous
  Country: IE (occurrence: IE)
  Receive Date: 20211028
  Receipt Date: 20211028
  Transmission Date: 20220303
  Serious: Yes (Disabling, Other)
  Sender: FDA-Public Use
  Company Number: IE-ABBVIE-21K-229-4135422-00

PATIENT
  Age: 80 Year
  Sex: Female
  Weight: 57.2 kg

DRUGS (11)
  1. EPILIM [Suspect]
     Active Substance: VALPROATE SODIUM
     Indication: Epilepsy
     Route: 048
     Dates: start: 1980
  2. EPILIM [Suspect]
     Active Substance: VALPROATE SODIUM
     Indication: Seizure
     Dosage: 20 ML BEING PHASED OUT. REDUCED FROM 50ML, 200 MG
     Route: 048
  3. EPILIM [Suspect]
     Active Substance: VALPROATE SODIUM
     Dosage: DECREASED TO 15ML
     Route: 048
  4. EPILIM [Suspect]
     Active Substance: VALPROATE SODIUM
     Dosage: DOSE REDUCED TO 10ML
     Route: 048
  5. DESMOPRESSIN [Concomitant]
     Active Substance: DESMOPRESSIN
     Indication: Product used for unknown indication
  6. SIMVASTATIN [Concomitant]
     Active Substance: SIMVASTATIN
     Indication: Product used for unknown indication
  7. CARBIDOPA\LEVODOPA [Concomitant]
     Active Substance: CARBIDOPA\LEVODOPA
     Indication: Product used for unknown indication
  8. FOLIC ACID [Concomitant]
     Active Substance: FOLIC ACID
     Indication: Product used for unknown indication
  9. CALCIUM CARBONATE\CHOLECALCIFEROL [Concomitant]
     Active Substance: CALCIUM CARBONATE\CHOLECALCIFEROL
     Indication: Product used for unknown indication
  10. METHOTREXATE [Concomitant]
     Active Substance: METHOTREXATE
     Indication: Product used for unknown indication
  11. LEVOTHYROXINE [Concomitant]
     Active Substance: LEVOTHYROXINE
     Indication: Product used for unknown indication

REACTIONS (6)
  - Progressive supranuclear palsy [Not Recovered/Not Resolved]
  - Gait disturbance [Unknown]
  - Mobility decreased [Recovering/Resolving]
  - Brain injury [Not Recovered/Not Resolved]
  - Dementia [Recovering/Resolving]
  - Urinary incontinence [Recovering/Resolving]
